FAERS Safety Report 12604684 (Version 1)
Quarter: 2016Q3

REPORT INFORMATION
  Report Type: Spontaneous
  Country: FR (occurrence: FR)
  Receive Date: 20160728
  Receipt Date: 20160728
  Transmission Date: 20161109
  Serious: Yes (Hospitalization, Other)
  Sender: FDA-Public Use
  Company Number: FR-ELI_LILLY_AND_COMPANY-FR201607005759

PATIENT
  Age: 81 Year
  Sex: Female

DRUGS (9)
  1. VALDOXAN [Concomitant]
     Active Substance: AGOMELATINE
     Dosage: 2 DF, EACH EVENING
     Route: 065
  2. PROZAC [Suspect]
     Active Substance: FLUOXETINE HYDROCHLORIDE
     Indication: PRODUCT USED FOR UNKNOWN INDICATION
     Dosage: 20 MG, OTHER
     Route: 048
  3. FIXICAL VITAMINE D3 [Concomitant]
     Active Substance: CALCIUM CARBONATE\VITAMIN D
     Dosage: 1 DF, EACH MORNING
     Route: 065
  4. CRESTOR [Concomitant]
     Active Substance: ROSUVASTATIN CALCIUM
     Dosage: 1 DF, EACH EVENING
     Route: 065
  5. ANAFRANIL [Concomitant]
     Active Substance: CLOMIPRAMINE HYDROCHLORIDE
     Dosage: 1 DF, EACH MORNING
     Route: 065
  6. IPERTEN [Concomitant]
     Active Substance: MANIDIPINE
     Dosage: 1 DF, EACH MORNING
  7. ANAFRANIL [Concomitant]
     Active Substance: CLOMIPRAMINE HYDROCHLORIDE
     Dosage: 1 DF, EACH EVENING
     Route: 065
  8. RAMIPRIL. [Concomitant]
     Active Substance: RAMIPRIL
     Dosage: 1 DF, EACH MORNING
     Route: 065
  9. LEXOMIL [Concomitant]
     Active Substance: BROMAZEPAM
     Dosage: 1 DF, EACH EVENING
     Route: 065

REACTIONS (12)
  - Ischaemic stroke [Unknown]
  - Rales [Unknown]
  - Pyramidal tract syndrome [Unknown]
  - Head injury [Unknown]
  - Tremor [Unknown]
  - Fall [Unknown]
  - Malaise [Unknown]
  - Cardiac murmur [Unknown]
  - Cerebral atrophy [Unknown]
  - Finger deformity [Unknown]
  - Leukoencephalopathy [Unknown]
  - Myoclonus [Unknown]

NARRATIVE: CASE EVENT DATE: 20160617
